FAERS Safety Report 20821480 (Version 1)
Quarter: 2022Q2

REPORT INFORMATION
  Report Type: Spontaneous
  Country: US (occurrence: US)
  Receive Date: 20220512
  Receipt Date: 20220512
  Transmission Date: 20220721
  Serious: No
  Sender: FDA-Public Use
  Company Number: US-PFIZER INC-202200333947

PATIENT
  Age: 69 Year
  Sex: Female
  Weight: 68.4 kg

DRUGS (2)
  1. XELJANZ XR [Suspect]
     Active Substance: TOFACITINIB CITRATE
     Indication: Pemphigoid
     Dosage: 11 MG, 2X/DAY (TAKES ONE IN THE MORNING AND ONE IN THE EVENING)
     Dates: start: 2020
  2. XARELTO [Concomitant]
     Active Substance: RIVAROXABAN
     Dosage: 20 MG, 1X/DAY (TAKES ONE AT NIGHT)

REACTIONS (5)
  - Off label use [Unknown]
  - Off label use [Unknown]
  - Product dose omission issue [Unknown]
  - Pruritus [Unknown]
  - Rash [Unknown]
